FAERS Safety Report 14972951 (Version 12)
Quarter: 2019Q3

REPORT INFORMATION
  Report Type: Spontaneous
  Country: US (occurrence: US)
  Receive Date: 20180605
  Receipt Date: 20190910
  Transmission Date: 20191004
  Serious: Yes (Hospitalization, Other)
  Sender: FDA-Public Use
  Company Number: US-PFIZER INC-2018224760

PATIENT
  Age: 67 Year
  Sex: Female

DRUGS (201)
  1. DILANTIN [Suspect]
     Active Substance: PHENYTOIN
     Dosage: 1 DF, UNK, EVERY TWELVE HOURS
     Route: 048
     Dates: start: 20111129
  2. DILANTIN [Suspect]
     Active Substance: PHENYTOIN
     Dosage: 2 DF(TABLETS), TWICE DAILY
     Dates: start: 19960315
  3. DILANTIN [Suspect]
     Active Substance: PHENYTOIN
     Dosage: 4 DF(TABLETS) AT BEDTIME
     Dates: start: 19980717
  4. DILANTIN [Suspect]
     Active Substance: PHENYTOIN
     Dosage: 2 DF(TABLETS), TWICE DAILY
     Dates: start: 20081203
  5. DILANTIN [Suspect]
     Active Substance: PHENYTOIN
     Dosage: 3 DF (TABLETS), BEDTIME
     Dates: start: 20110809
  6. DILANTIN [Suspect]
     Active Substance: PHENYTOIN
     Dosage: UNK
     Dates: start: 19951117
  7. DILANTIN [Suspect]
     Active Substance: PHENYTOIN
     Dosage: UNK
     Dates: start: 20011211
  8. DILANTIN [Suspect]
     Active Substance: PHENYTOIN
     Dosage: UNK
     Dates: start: 20101221
  9. PHENOBARBITAL. [Concomitant]
     Active Substance: PHENOBARBITAL
     Dosage: UNK, TWICE DAILY
     Dates: start: 19950307
  10. PHENOBARBITAL. [Concomitant]
     Active Substance: PHENOBARBITAL
     Dosage: UNK, TWICE DAILY
     Dates: start: 19951201
  11. PHENOBARBITAL. [Concomitant]
     Active Substance: PHENOBARBITAL
     Dosage: UNK
     Dates: start: 20101221
  12. PHENOBARBITAL. [Concomitant]
     Active Substance: PHENOBARBITAL
     Dosage: UNK
     Dates: start: 20111004
  13. PHENOBARBITAL. [Concomitant]
     Active Substance: PHENOBARBITAL
     Dosage: 2 TABLET MORNING 4 TABLET EVENING
     Dates: start: 20080229
  14. PHENOBARBITAL. [Concomitant]
     Active Substance: PHENOBARBITAL
     Dosage: 2 TABLET MORNING 4 TABLET EVENING
     Dates: start: 20090818
  15. PHENOBARBITAL. [Concomitant]
     Active Substance: PHENOBARBITAL
     Dosage: 1 TABLET MORNING 2 TABLET EVENING
     Dates: start: 20110909
  16. LUMINAL [Concomitant]
     Active Substance: PHENOBARBITAL SODIUM
     Indication: SEIZURE
     Dosage: 32.4 MG, 2X/DAY
     Route: 048
     Dates: start: 20101221, end: 20110426
  17. LUMINAL [Concomitant]
     Active Substance: PHENOBARBITAL SODIUM
     Dosage: 129.6 MG, DAILY AT BEDTIME
     Route: 048
     Dates: start: 20110428, end: 20110928
  18. KEPPRA [Concomitant]
     Active Substance: LEVETIRACETAM
     Dosage: 750 MG, 2X/DAY  (EVERY 12 HOURS)
     Route: 048
     Dates: start: 20160929, end: 20160929
  19. KEPPRA [Concomitant]
     Active Substance: LEVETIRACETAM
     Dosage: UNK
  20. VITAMIN D [Concomitant]
     Active Substance: VITAMIN D NOS
     Dosage: UNK; EVERY 14 DAYS
  21. POTASSIUM CHLORIDE. [Concomitant]
     Active Substance: POTASSIUM CHLORIDE
     Dosage: 10 MEQ, 1X/DAY
     Route: 048
  22. METOPROLOL. [Concomitant]
     Active Substance: METOPROLOL
     Indication: HYPERTENSION
     Dosage: UNK
     Dates: start: 20120331, end: 20180417
  23. PRAVASTATIN. [Concomitant]
     Active Substance: PRAVASTATIN
     Indication: HYPERLIPIDAEMIA
     Dosage: UNK
     Dates: start: 20120331, end: 20180417
  24. PRAVASTATIN. [Concomitant]
     Active Substance: PRAVASTATIN
     Dosage: UNK
  25. ATIVAN [Concomitant]
     Active Substance: LORAZEPAM
     Indication: SEIZURE
     Dosage: UNK UNK, AS NEEDED
     Route: 030
     Dates: start: 20180417
  26. ZONISAMIDE. [Concomitant]
     Active Substance: ZONISAMIDE
     Dosage: 4 DF (TABLET), EVENING
     Dates: start: 20150629
  27. DILANTIN [Suspect]
     Active Substance: PHENYTOIN
     Indication: IDIOPATHIC GENERALISED EPILEPSY
     Dosage: 200 MG, 2X/DAY
     Route: 048
     Dates: start: 20101221, end: 20101224
  28. DILANTIN [Suspect]
     Active Substance: PHENYTOIN
     Dosage: 500 MG, DAILY
     Route: 048
     Dates: start: 20110929, end: 20110929
  29. DILANTIN [Suspect]
     Active Substance: PHENYTOIN
     Dosage: 300 MG, DAILY AT NIGHT
     Route: 048
     Dates: start: 20160926, end: 20160927
  30. DILANTIN [Suspect]
     Active Substance: PHENYTOIN
     Dosage: 3 DF(TABLETS), TWICE DAILY
     Dates: start: 19960712
  31. DILANTIN [Suspect]
     Active Substance: PHENYTOIN
     Dosage: 2 DF(TABLETS), TWICE DAILY
     Dates: start: 20080114
  32. DILANTIN [Suspect]
     Active Substance: PHENYTOIN
     Dosage: 2 DF(TABLETS), TWICE DAILY
     Dates: start: 20080328
  33. DILANTIN [Suspect]
     Active Substance: PHENYTOIN
     Dosage: 3 DF (TABLETS), BEDTIME
     Dates: start: 20110909
  34. DILANTIN [Suspect]
     Active Substance: PHENYTOIN
     Dosage: UNK
     Dates: start: 20101008
  35. PHENOBARBITAL. [Concomitant]
     Active Substance: PHENOBARBITAL
     Indication: SEIZURE
     Dosage: UNK
     Dates: start: 1966, end: 2014
  36. PHENOBARBITAL. [Concomitant]
     Active Substance: PHENOBARBITAL
     Dosage: UNK, TWICE DAILY
     Dates: start: 19950409
  37. PHENOBARBITAL. [Concomitant]
     Active Substance: PHENOBARBITAL
     Dosage: UNK
     Dates: start: 20010907
  38. PHENOBARBITAL. [Concomitant]
     Active Substance: PHENOBARBITAL
     Dosage: UNK
     Dates: start: 20080530
  39. PHENOBARBITAL. [Concomitant]
     Active Substance: PHENOBARBITAL
     Dosage: UNK
     Dates: start: 20090619
  40. PHENOBARBITAL. [Concomitant]
     Active Substance: PHENOBARBITAL
     Dosage: UNK
     Dates: start: 20110426
  41. PHENOBARBITAL. [Concomitant]
     Active Substance: PHENOBARBITAL
     Dosage: UNK
     Dates: start: 20110922
  42. PHENOBARBITAL. [Concomitant]
     Active Substance: PHENOBARBITAL
     Dosage: 64.8 MG, 1X/DAY
     Route: 048
  43. PHENOBARBITAL. [Concomitant]
     Active Substance: PHENOBARBITAL
     Dosage: 129.6 MG, 1X/DAY
     Route: 048
  44. PHENOBARBITAL. [Concomitant]
     Active Substance: PHENOBARBITAL
     Dosage: 2 TABLET MORNING 4 TABLET EVENING
     Dates: start: 20120331
  45. PHENOBARBITAL. [Concomitant]
     Active Substance: PHENOBARBITAL
     Dosage: 1 DF (TABLET), DAILY
     Dates: start: 20140908
  46. KEPPRA [Concomitant]
     Active Substance: LEVETIRACETAM
     Dosage: UNK, EVERY 12 HOURS
     Dates: start: 20160927
  47. BACLOFEN. [Concomitant]
     Active Substance: BACLOFEN
     Dosage: 10 MG, 3X/DAY
     Route: 048
  48. VITAMIN D [Concomitant]
     Active Substance: VITAMIN D NOS
     Dosage: UNK
     Dates: start: 20120331, end: 20180417
  49. OXYBUTYNIN CHLORIDE. [Concomitant]
     Active Substance: OXYBUTYNIN CHLORIDE
     Dosage: 10 MG, 1X/DAY
     Route: 048
  50. ULORIC [Concomitant]
     Active Substance: FEBUXOSTAT
     Dosage: 40 MG, 1X/DAY
     Route: 048
  51. PRAVACHOL [Concomitant]
     Active Substance: PRAVASTATIN SODIUM
     Dosage: 80 MG, 1X/DAY
     Route: 048
  52. TOPROL XL [Concomitant]
     Active Substance: METOPROLOL SUCCINATE
     Dosage: UNK
  53. VITAMIN D2 [Concomitant]
     Active Substance: ERGOCALCIFEROL
     Dosage: 5000 IU, WEEKLY
     Route: 048
  54. LOVASTATIN. [Concomitant]
     Active Substance: LOVASTATIN
     Dosage: 80 MG, 1X/DAY
     Route: 048
  55. DIOVAN [Concomitant]
     Active Substance: VALSARTAN
     Dosage: 80 MG, 1X/DAY
     Route: 048
  56. BUROWS [Concomitant]
     Dosage: UNK, 2X/DAY
     Dates: start: 20120317
  57. CLINDAMYCIN. [Concomitant]
     Active Substance: CLINDAMYCIN
     Dosage: 600MG/4ML INJ
  58. ZONISAMIDE. [Concomitant]
     Active Substance: ZONISAMIDE
     Dosage: UNK
  59. DILANTIN [Suspect]
     Active Substance: PHENYTOIN
     Dosage: 200 MG, DAILY EVERY 12 HOURS
     Route: 048
     Dates: start: 20111002, end: 20111004
  60. DILANTIN [Suspect]
     Active Substance: PHENYTOIN
     Dosage: 3 DF(TABLETS), TWICE DAILY
     Dates: start: 19960229
  61. DILANTIN [Suspect]
     Active Substance: PHENYTOIN
     Dosage: 2 DF(TABLETS), TWICE DAILY
     Dates: start: 20071024
  62. DILANTIN [Suspect]
     Active Substance: PHENYTOIN
     Dosage: 2 DF(TABLETS), TWICE DAILY
     Dates: start: 20090619
  63. DILANTIN [Suspect]
     Active Substance: PHENYTOIN
     Dosage: 2 DF(TABLETS), TWICE DAILY
     Dates: start: 20091202
  64. DILANTIN [Suspect]
     Active Substance: PHENYTOIN
     Dosage: UNK
     Dates: start: 19981106
  65. DILANTIN [Suspect]
     Active Substance: PHENYTOIN
     Dosage: UNK
     Dates: start: 20101223
  66. PHENOBARBITAL. [Concomitant]
     Active Substance: PHENOBARBITAL
     Dosage: UNK
     Dates: start: 19951117
  67. PHENOBARBITAL. [Concomitant]
     Active Substance: PHENOBARBITAL
     Dosage: UNK
     Dates: start: 20101223
  68. PHENOBARBITAL. [Concomitant]
     Active Substance: PHENOBARBITAL
     Dosage: UNK
     Dates: start: 20111001
  69. PHENOBARBITAL. [Concomitant]
     Active Substance: PHENOBARBITAL
     Dosage: UNK
     Dates: start: 20130213
  70. PHENOBARBITAL. [Concomitant]
     Active Substance: PHENOBARBITAL
     Dosage: 2 TABLET MORNING 4 TABLET EVENING
     Dates: start: 20080916
  71. PHENOBARBITAL. [Concomitant]
     Active Substance: PHENOBARBITAL
     Dosage: 2 TABLET MORNING 4 TABLET EVENING
     Dates: start: 20090718
  72. PHENOBARBITAL. [Concomitant]
     Active Substance: PHENOBARBITAL
     Dosage: 2 TABLET MORNING 4 TABLET EVENING
     Dates: start: 20100112
  73. PHENOBARBITAL. [Concomitant]
     Active Substance: PHENOBARBITAL
     Dosage: 1 TABLET MORNING 2 TABLET EVENING
     Dates: start: 20110706
  74. PHENOBARBITAL. [Concomitant]
     Active Substance: PHENOBARBITAL
     Dosage: 1 TABLET MORNING 2 TABLET EVENING
     Dates: start: 20110809
  75. KEPPRA [Concomitant]
     Active Substance: LEVETIRACETAM
     Indication: EPILEPSY
     Dosage: 500 MG, 2X/DAY
  76. KEPPRA [Concomitant]
     Active Substance: LEVETIRACETAM
     Dosage: UNK, TWICE DAILY
     Dates: start: 20180417
  77. PERCOCET [Concomitant]
     Active Substance: ACETAMINOPHEN\OXYCODONE HYDROCHLORIDE
     Dosage: 5 MG-325 MG, EVERY 6-8 HOURS
     Route: 048
  78. METFORMIN HCL [Concomitant]
     Active Substance: METFORMIN HYDROCHLORIDE
     Dosage: 500 MG, 2X/DAY
     Route: 048
  79. ZONISAMIDE. [Concomitant]
     Active Substance: ZONISAMIDE
     Indication: EPILEPSY
     Dosage: 1 DF (CAP) DAY AND BDTIME; INCREASE BY 100MG EACH WEEK TO TARGET 400MG EVERY BEDTIME BY WEEK 4
     Route: 048
     Dates: start: 20111129
  80. LORAZEPAM. [Concomitant]
     Active Substance: LORAZEPAM
     Dosage: UNK UNK, EVERY 4 HOURS AS NEEDED
     Route: 030
     Dates: start: 20180424
  81. ZONISAMIDE. [Concomitant]
     Active Substance: ZONISAMIDE
     Dosage: 1 (UNKNOWN FORMULATION), AT EVERY BEDTIME
     Dates: start: 20120331
  82. ZONISAMIDE. [Concomitant]
     Active Substance: ZONISAMIDE
     Dosage: 1 (UNKNOWN FORMULATION), AT EVERY BEDTIME
     Dates: start: 20180424
  83. DILANTIN [Suspect]
     Active Substance: PHENYTOIN
     Dosage: 300 MG, DAILY AT BEDTIME
     Route: 048
     Dates: start: 20110928, end: 20111002
  84. DILANTIN [Suspect]
     Active Substance: PHENYTOIN
     Dosage: 2 DF, 2X/DAY
     Route: 048
     Dates: start: 20110929
  85. DILANTIN [Suspect]
     Active Substance: PHENYTOIN
     Dosage: 4 DF(TABLETS) AT BEDTIME
     Dates: start: 19980917
  86. DILANTIN [Suspect]
     Active Substance: PHENYTOIN
     Dosage: 2 DF(TABLETS), TWICE DAILY
     Dates: start: 20090818
  87. DILANTIN [Suspect]
     Active Substance: PHENYTOIN
     Dosage: UNK
     Dates: start: 19960104
  88. DILANTIN [Suspect]
     Active Substance: PHENYTOIN
     Dosage: UNK
     Dates: start: 20021204
  89. DILANTIN [Suspect]
     Active Substance: PHENYTOIN
     Dosage: UNK, TWICE DAILY
     Dates: start: 20080521
  90. DILANTIN [Suspect]
     Active Substance: PHENYTOIN
     Dosage: UNK
     Dates: start: 20111001
  91. DILANTIN [Suspect]
     Active Substance: PHENYTOIN
     Dosage: UNK
     Dates: start: 20111004
  92. DILANTIN [Suspect]
     Active Substance: PHENYTOIN
     Dosage: UNK
     Dates: start: 20111129
  93. PHENOBARBITAL. [Concomitant]
     Active Substance: PHENOBARBITAL
     Dosage: UNK, TWICE DAILY
     Dates: start: 19950322
  94. PHENOBARBITAL. [Concomitant]
     Active Substance: PHENOBARBITAL
     Dosage: UNK
     Dates: start: 20010425
  95. PHENOBARBITAL. [Concomitant]
     Active Substance: PHENOBARBITAL
     Dosage: UNK
     Dates: start: 20110706
  96. PHENOBARBITAL. [Concomitant]
     Active Substance: PHENOBARBITAL
     Dosage: 2 DF (TABLETS), TWICE DAILY
     Dates: start: 19960315
  97. PHENOBARBITAL. [Concomitant]
     Active Substance: PHENOBARBITAL
     Dosage: 2 TABLET MORNING 4 TABLET EVENING
     Dates: start: 20080521
  98. PHENOBARBITAL. [Concomitant]
     Active Substance: PHENOBARBITAL
     Dosage: 2 TABLET MORNING 4 TABLET EVENING
     Dates: start: 20120401
  99. KEPPRA [Concomitant]
     Active Substance: LEVETIRACETAM
     Dosage: UNK, TWICE DAILY
     Dates: start: 20180424
  100. VITAMIN D [Concomitant]
     Active Substance: VITAMIN D NOS
     Indication: SUPPLEMENTATION THERAPY
     Dosage: 2000 IU, 1X/DAY
     Route: 048
  101. NORVASC [Concomitant]
     Active Substance: AMLODIPINE BESYLATE
     Dosage: 5 MG, 1X/DAY
     Route: 048
  102. METOPROLOL SUCCINATE. [Concomitant]
     Active Substance: METOPROLOL SUCCINATE
     Dosage: 50 MG, 1X/DAY
     Route: 048
  103. ERGOCALCIFEROL. [Concomitant]
     Active Substance: ERGOCALCIFEROL
     Dosage: UNK
  104. GLYBURIDE. [Concomitant]
     Active Substance: GLYBURIDE
     Dosage: UNK
  105. HEPARIN [Concomitant]
     Active Substance: HEPARIN SODIUM
     Dosage: 5,000 UNITS/ML
  106. BUMEX [Concomitant]
     Active Substance: BUMETANIDE
     Indication: RENAL DISORDER
     Dosage: UNK
  107. ASPIRIN. [Concomitant]
     Active Substance: ASPIRIN
     Indication: PROPHYLAXIS
     Dosage: UNK
     Dates: start: 20120331, end: 20180417
  108. ZONISAMIDE. [Concomitant]
     Active Substance: ZONISAMIDE
     Indication: EPILEPSY
     Dosage: 1 (UNKNOWN FORMULATION), AT EVERY BEDTIME
     Dates: start: 20111129
  109. DILANTIN [Suspect]
     Active Substance: PHENYTOIN
     Indication: SEIZURE
     Dosage: 300 MG, 1X/DAY,(BEDTIME)
     Route: 048
     Dates: start: 20110428
  110. DILANTIN [Suspect]
     Active Substance: PHENYTOIN
     Dosage: 2 DF, 2X/DAY
     Route: 048
     Dates: start: 20111129
  111. DILANTIN [Suspect]
     Active Substance: PHENYTOIN
     Dosage: 2 DF(TABLETS), TWICE DAILY
     Dates: start: 20090718
  112. DILANTIN [Suspect]
     Active Substance: PHENYTOIN
     Dosage: 2 DF(TABLETS), TWICE DAILY
     Dates: start: 20100908
  113. DILANTIN [Suspect]
     Active Substance: PHENYTOIN
     Dosage: UNK, TWICE DAILY
     Dates: start: 19950322
  114. DILANTIN [Suspect]
     Active Substance: PHENYTOIN
     Dosage: UNK, TWICE DAILY
     Dates: start: 19950409
  115. DILANTIN [Suspect]
     Active Substance: PHENYTOIN
     Dosage: UNK
     Dates: start: 20110706
  116. PHENOBARBITAL. [Concomitant]
     Active Substance: PHENOBARBITAL
     Dosage: UNK
     Dates: start: 19980717
  117. PHENOBARBITAL. [Concomitant]
     Active Substance: PHENOBARBITAL
     Dosage: UNK
     Dates: start: 20011105
  118. PHENOBARBITAL. [Concomitant]
     Active Substance: PHENOBARBITAL
     Dosage: UNK
     Dates: start: 20111129
  119. PHENOBARBITAL. [Concomitant]
     Active Substance: PHENOBARBITAL
     Dosage: 2 DF (TABLETS), TWICE DAILY
     Dates: start: 19960712
  120. PHENOBARBITAL. [Concomitant]
     Active Substance: PHENOBARBITAL
     Dosage: 2 TABLET MORNING 4 TABLET EVENING
     Dates: start: 20080114
  121. PHENOBARBITAL. [Concomitant]
     Active Substance: PHENOBARBITAL
     Dosage: 2 TABLET MORNING 4 TABLET EVENING
     Dates: start: 20110318
  122. KEPPRA [Concomitant]
     Active Substance: LEVETIRACETAM
     Dosage: 1000 MG, 2X/DAY (EVERY 12 HOURS)
     Route: 048
     Dates: start: 20160927, end: 20160927
  123. METOPROLOL SUCCINATE. [Concomitant]
     Active Substance: METOPROLOL SUCCINATE
     Dosage: 25 MG, 1X/DAY
     Route: 048
  124. ZETIA [Concomitant]
     Active Substance: EZETIMIBE
     Dosage: 10 MG, 1X/DAY
     Route: 048
  125. ALLOPURINOL. [Concomitant]
     Active Substance: ALLOPURINOL
     Dosage: UNK
  126. CITALOPRAM [Concomitant]
     Active Substance: CITALOPRAM HYDROBROMIDE
     Indication: DEPRESSION
     Dosage: UNK
     Dates: start: 20120401, end: 20150629
  127. METOPROLOL. [Concomitant]
     Active Substance: METOPROLOL
     Dosage: UNK
  128. VITAMIN C [Concomitant]
     Active Substance: ASCORBIC ACID
     Indication: SUPPLEMENTATION THERAPY
     Dosage: UNK
  129. CALCIUM [Concomitant]
     Active Substance: CALCIUM
     Dosage: UNK
  130. LOSARTAN. [Concomitant]
     Active Substance: LOSARTAN
     Indication: HYPERTENSION
     Dosage: UNK
  131. IRON [Concomitant]
     Active Substance: IRON
     Indication: SUPPLEMENTATION THERAPY
     Dosage: UNK
  132. DILANTIN [Suspect]
     Active Substance: PHENYTOIN
     Dosage: 2 DF(TABLETS), TWICE DAILY
     Dates: start: 20080229
  133. DILANTIN [Suspect]
     Active Substance: PHENYTOIN
     Dosage: 2 DF(TABLETS), TWICE DAILY
     Dates: start: 20080521
  134. DILANTIN [Suspect]
     Active Substance: PHENYTOIN
     Dosage: 2 DF(TABLETS), TWICE DAILY
     Dates: start: 20080916
  135. DILANTIN [Suspect]
     Active Substance: PHENYTOIN
     Dosage: 2 DF(TABLETS), TWICE DAILY
     Dates: start: 20100112
  136. DILANTIN [Suspect]
     Active Substance: PHENYTOIN
     Dosage: 2 DF(TABLETS), TWICE DAILY
     Dates: start: 20110318
  137. DILANTIN [Suspect]
     Active Substance: PHENYTOIN
     Dosage: 3 DF (TABLETS), BEDTIME
     Dates: start: 20110706
  138. DILANTIN [Suspect]
     Active Substance: PHENYTOIN
     Dosage: UNK, TWICE DAILY
     Dates: start: 20080916
  139. DILANTIN [Suspect]
     Active Substance: PHENYTOIN
     Dosage: UNK
     Dates: start: 20110426
  140. PHENOBARBITAL. [Concomitant]
     Active Substance: PHENOBARBITAL
     Dosage: 2 TABLET MORNING 4 TABLET EVENING
     Dates: start: 20070803
  141. PHENOBARBITAL. [Concomitant]
     Active Substance: PHENOBARBITAL
     Dosage: 2 TABLET MORNING 4 TABLET EVENING
     Dates: start: 20080916
  142. PHENOBARBITAL. [Concomitant]
     Active Substance: PHENOBARBITAL
     Dosage: 2 TABLET MORNING 4 TABLET EVENING
     Dates: start: 20081203
  143. LUMINAL [Concomitant]
     Active Substance: PHENOBARBITAL SODIUM
     Dosage: 64.8 MG, EVERY MORNING
     Route: 048
     Dates: start: 20110428, end: 20110928
  144. LISINOPRIL. [Concomitant]
     Active Substance: LISINOPRIL
     Dosage: 5 MG, 1X/DAY
     Route: 048
  145. DIPHENHYDRAMINE HCL [Concomitant]
     Active Substance: DIPHENHYDRAMINE HYDROCHLORIDE
     Indication: PRURITUS
     Dosage: 25 MG, AS NEEDED (EVERY 6 HOURS)
     Route: 048
  146. ASPIR 81 [Concomitant]
     Active Substance: ASPIRIN
     Dosage: 81 MG, 1X/DAY
     Route: 048
  147. NOVOLOG [Concomitant]
     Active Substance: INSULIN ASPART
     Dosage: UNK
     Route: 058
  148. LIPITOR [Concomitant]
     Active Substance: ATORVASTATIN CALCIUM
     Dosage: 40 MG, 1X/DAY
     Route: 048
  149. FISH OIL [Concomitant]
     Active Substance: FISH OIL
     Indication: SUPPLEMENTATION THERAPY
     Dosage: UNK
  150. DILANTIN [Suspect]
     Active Substance: PHENYTOIN
     Dosage: 3 DF(TABLETS), TWICE DAILY
     Dates: start: 19970718
  151. DILANTIN [Suspect]
     Active Substance: PHENYTOIN
     Dosage: 2 DF(TABLETS), TWICE DAILY
     Dates: start: 20070803
  152. DILANTIN [Suspect]
     Active Substance: PHENYTOIN
     Dosage: UNK, TWICE DAILY
     Dates: start: 19950307
  153. DILANTIN [Suspect]
     Active Substance: PHENYTOIN
     Dosage: UNK
     Dates: start: 20080530
  154. DILANTIN [Suspect]
     Active Substance: PHENYTOIN
     Dosage: UNK
     Dates: start: 20101012
  155. DILANTIN [Suspect]
     Active Substance: PHENYTOIN
     Dosage: UNK
     Dates: start: 20110428
  156. DILANTIN [Suspect]
     Active Substance: PHENYTOIN
     Dosage: UNK
     Dates: start: 20110809
  157. DILANTIN [Suspect]
     Active Substance: PHENYTOIN
     Dosage: UNK
     Dates: start: 20110922
  158. DILANTIN [Suspect]
     Active Substance: PHENYTOIN
     Dosage: UNK
     Dates: start: 20110928
  159. DILANTIN [Suspect]
     Active Substance: PHENYTOIN
     Dosage: UNK
     Dates: start: 20160927
  160. PHENOBARBITAL. [Concomitant]
     Active Substance: PHENOBARBITAL
     Dosage: UNK
     Dates: start: 19960104
  161. PHENOBARBITAL. [Concomitant]
     Active Substance: PHENOBARBITAL
     Dosage: UNK
     Dates: start: 20101008
  162. PHENOBARBITAL. [Concomitant]
     Active Substance: PHENOBARBITAL
     Dosage: UNK
     Dates: start: 20101012
  163. PHENOBARBITAL. [Concomitant]
     Active Substance: PHENOBARBITAL
     Dosage: UNK
     Dates: start: 20110809
  164. PHENOBARBITAL. [Concomitant]
     Active Substance: PHENOBARBITAL
     Dosage: UNK
     Dates: start: 20110928
  165. PHENOBARBITAL. [Concomitant]
     Active Substance: PHENOBARBITAL
     Dosage: 2 DF (TABLETS), TWICE DAILY
     Dates: start: 19960229
  166. PHENOBARBITAL. [Concomitant]
     Active Substance: PHENOBARBITAL
     Dosage: 2 TABLET MORNING 4 TABLET EVENING
     Dates: start: 20071024
  167. PHENOBARBITAL. [Concomitant]
     Active Substance: PHENOBARBITAL
     Dosage: 2 TABLET MORNING 4 TABLET EVENING
     Dates: start: 20080328
  168. PHENOBARBITAL. [Concomitant]
     Active Substance: PHENOBARBITAL
     Dosage: 2 TABLET MORNING 4 TABLET EVENING
     Dates: start: 20080521
  169. PHENOBARBITAL. [Concomitant]
     Active Substance: PHENOBARBITAL
     Dosage: 2 TABLET MORNING 4 TABLET EVENING
     Dates: start: 20090522
  170. PHENOBARBITAL. [Concomitant]
     Active Substance: PHENOBARBITAL
     Dosage: 2 TABLET MORNING 4 TABLET EVENING
     Dates: start: 20090619
  171. PHENOBARBITAL. [Concomitant]
     Active Substance: PHENOBARBITAL
     Dosage: 2 TABLET MORNING 4 TABLET EVENING
     Dates: start: 20091202
  172. PHENOBARBITAL. [Concomitant]
     Active Substance: PHENOBARBITAL
     Dosage: 2 TABLET MORNING 4 TABLET EVENING
     Dates: start: 20100908
  173. PHENOBARBITAL. [Concomitant]
     Active Substance: PHENOBARBITAL
     Dosage: 2 TABLET MORNING 4 TABLET EVENING
     Dates: start: 20120331
  174. PHENOBARBITAL. [Concomitant]
     Active Substance: PHENOBARBITAL
     Dosage: 2 TABLET MORNING 4 TABLET EVENING
     Dates: start: 20150629
  175. LISINOPRIL. [Concomitant]
     Active Substance: LISINOPRIL
     Dosage: 80 MG, 1X/DAY
     Route: 048
  176. LANTUS [Concomitant]
     Active Substance: INSULIN GLARGINE
     Indication: DIABETES MELLITUS
     Dosage: 100 ML, 1X/DAY
     Route: 058
  177. HYDROCHLOROTHIAZIDE. [Concomitant]
     Active Substance: HYDROCHLOROTHIAZIDE
     Dosage: 25 MG, 1X/DAY
     Route: 048
  178. FUROSEMIDE. [Concomitant]
     Active Substance: FUROSEMIDE
     Dosage: 20 MG, 1X/DAY
     Route: 048
  179. TOPROL XL [Concomitant]
     Active Substance: METOPROLOL SUCCINATE
     Indication: HYPERTENSION
     Dosage: 50 MG, 1X/DAY
     Route: 048
  180. CALCIUM CARBONATE. [Concomitant]
     Active Substance: CALCIUM CARBONATE
     Dosage: 500MG CHEWTAB (200MG ELEM)
  181. VANCOMYCIN [Concomitant]
     Active Substance: VANCOMYCIN
     Dosage: UNK
  182. ZONISAMIDE. [Concomitant]
     Active Substance: ZONISAMIDE
     Indication: EPILEPSY
     Dosage: 4 DF (TABLET), EVENING
     Dates: start: 20120331
  183. ZONISAMIDE. [Concomitant]
     Active Substance: ZONISAMIDE
     Dosage: 1 (UNKNOWN FORMULATION), AT EVERY BEDTIME
     Dates: start: 20120401
  184. ZONISAMIDE. [Concomitant]
     Active Substance: ZONISAMIDE
     Dosage: 1 (UNKNOWN FORMULATION), AT EVERY BEDTIME
     Dates: start: 20160927
  185. ZONISAMIDE. [Concomitant]
     Active Substance: ZONISAMIDE
     Dosage: 1 (UNKNOWN FORMULATION), AT EVERY BEDTIME
     Dates: start: 20180417
  186. DILANTIN [Suspect]
     Active Substance: PHENYTOIN
     Dosage: 2 DF(TABLETS), TWICE DAILY
     Dates: start: 20090522
  187. DILANTIN [Suspect]
     Active Substance: PHENYTOIN
     Dosage: UNK
     Dates: start: 20090619
  188. PHENOBARBITAL. [Concomitant]
     Active Substance: PHENOBARBITAL
     Dosage: UNK
     Dates: start: 19960122
  189. PHENOBARBITAL. [Concomitant]
     Active Substance: PHENOBARBITAL
     Dosage: UNK
     Dates: start: 20011010
  190. PHENOBARBITAL. [Concomitant]
     Active Substance: PHENOBARBITAL
     Dosage: UNK
     Dates: start: 20110428
  191. PHENOBARBITAL. [Concomitant]
     Active Substance: PHENOBARBITAL
     Dosage: 4 DF (TABLET), EVERY TWELVE HOURS
     Route: 048
     Dates: start: 20111129
  192. LANTUS [Concomitant]
     Active Substance: INSULIN GLARGINE
     Dosage: UNK
     Route: 058
  193. COLCHICINE. [Concomitant]
     Active Substance: COLCHICINE
     Dosage: 0.6 MG, (EVERY 6-8 HOURS)
     Route: 048
  194. LOVASTATIN. [Concomitant]
     Active Substance: LOVASTATIN
     Dosage: 40 MG, 1X/DAY
     Route: 048
  195. DICLOFENAC SODIUM. [Concomitant]
     Active Substance: DICLOFENAC SODIUM
     Dosage: 1 %, 3X/DAY
  196. DEXTROSE 5% [Concomitant]
     Active Substance: DEXTROSE
     Dosage: 100ML/500ML
  197. SENNA ALEXANDRINA [Concomitant]
     Active Substance: SENNA LEAF
     Dosage: UNK
  198. CALCIUM [Concomitant]
     Active Substance: CALCIUM
     Indication: SUPPLEMENTATION THERAPY
     Dosage: UNK
     Dates: start: 20120401, end: 20180417
  199. ZONISAMIDE. [Concomitant]
     Active Substance: ZONISAMIDE
     Dosage: 2 DF (TABLET), EVERYDAY
     Dates: start: 20140908
  200. ZONISAMIDE. [Concomitant]
     Active Substance: ZONISAMIDE
     Dosage: 1 (UNKNOWN FORMULATION), AT EVERY BEDTIME
     Dates: start: 20130213
  201. ZONISAMIDE. [Concomitant]
     Active Substance: ZONISAMIDE
     Dosage: UNK UNK, DAILY
     Dates: start: 20140904

REACTIONS (17)
  - Cerebellar ataxia [Not Recovered/Not Resolved]
  - Periorbital swelling [Unknown]
  - Anxiety [Not Recovered/Not Resolved]
  - Dysarthria [Not Recovered/Not Resolved]
  - Toxicity to various agents [Recovered/Resolved]
  - Muscular weakness [Not Recovered/Not Resolved]
  - Neuropathy peripheral [Not Recovered/Not Resolved]
  - Cognitive disorder [Not Recovered/Not Resolved]
  - Cerebral atrophy [Unknown]
  - Thoracic spinal stenosis [Unknown]
  - Cerebellar atrophy [Not Recovered/Not Resolved]
  - Amnesia [Not Recovered/Not Resolved]
  - Coordination abnormal [Not Recovered/Not Resolved]
  - Soft tissue swelling [Unknown]
  - Balance disorder [Not Recovered/Not Resolved]
  - Intervertebral disc disorder [Unknown]
  - Persistent depressive disorder [Unknown]

NARRATIVE: CASE EVENT DATE: 20110427
